FAERS Safety Report 6846950-8 (Version None)
Quarter: 2010Q3

REPORT INFORMATION
  Report Type: 
  Country: None (occurrence: None)
  Receive Date: 20100713
  Receipt Date: 20100629
  Transmission Date: 20110219
  Serious: Yes (Other)
  Sender: FDA-Public Use
  Company Number: 2010SCPR001713

PATIENT
  Age: 50 Year
  Sex: Male

DRUGS (2)
  1. DISULFIRAM [Suspect]
     Indication: PRODUCT USED FOR UNKNOWN INDICATION
  2. ETHANOL (ETHANOL) UNKNOWN [Suspect]
     Indication: PRODUCT USED FOR UNKNOWN INDICATION

REACTIONS (4)
  - DRUG INTERACTION [None]
  - ELECTROCARDIOGRAM ST SEGMENT DEPRESSION [None]
  - HYPOTENSION [None]
  - MYOCARDIAL ISCHAEMIA [None]
